FAERS Safety Report 6019415-3 (Version None)
Quarter: 2008Q4

REPORT INFORMATION
  Report Type: 
  Country: None (occurrence: None)
  Receive Date: 20081224
  Receipt Date: 20081212
  Transmission Date: 20090506
  Serious: Yes (Other)
  Sender: FDA-Public Use
  Company Number: JP-PFIZER INC-2008157040

PATIENT

DRUGS (6)
  1. AZITHROMYCIN [Suspect]
     Dosage: UNK
     Dates: start: 20081203, end: 20081205
  2. TRANSAMIN [Concomitant]
  3. NEUZYM [Concomitant]
  4. ZADITEN [Concomitant]
  5. ONON [Concomitant]
  6. CELESTAMINE TAB [Concomitant]

REACTIONS (1)
  - ERYTHEMA MULTIFORME [None]
